FAERS Safety Report 9858529 (Version 2)
Quarter: 2014Q3

REPORT INFORMATION
  Report Type: Spontaneous
  Country: SE (occurrence: SE)
  Receive Date: 20140131
  Receipt Date: 20140814
  Transmission Date: 20150326
  Serious: Yes (Hospitalization)
  Sender: FDA-Public Use
  Company Number: SE-NOVOPROD-398423

PATIENT
  Age: 24 Year
  Sex: Female

DRUGS (5)
  1. SERTRALIN RANBAXY [Suspect]
     Active Substance: SERTRALINE HYDROCHLORIDE
     Indication: PRODUCT USED FOR UNKNOWN INDICATION
     Dosage: UNK TAB, UNK
     Route: 065
     Dates: start: 20130809, end: 20140111
  2. NOVORAPID [Suspect]
     Active Substance: INSULIN ASPART
     Indication: TYPE 1 DIABETES MELLITUS
     Dosage: UNK
     Route: 058
  3. ACTRAPID [Concomitant]
     Active Substance: INSULIN HUMAN
     Indication: TYPE 1 DIABETES MELLITUS
     Dosage: UNK
     Dates: end: 20140107
  4. ZOPIKLON PILUM [Concomitant]
     Dosage: UNK
     Dates: end: 20140110
  5. CONDYLINE [Concomitant]
     Dosage: UNK
     Route: 065
     Dates: end: 20140107

REACTIONS (4)
  - Intentional self-injury [Recovered/Resolved]
  - Toxicity to various agents [Recovered/Resolved]
  - Hypoglycaemia [Recovered/Resolved]
  - Restless legs syndrome [None]

NARRATIVE: CASE EVENT DATE: 20140107
